FAERS Safety Report 6837407-9 (Version None)
Quarter: 2010Q3

REPORT INFORMATION
  Report Type: 
  Country: None (occurrence: None)
  Receive Date: 20100713
  Receipt Date: 20070510
  Transmission Date: 20110219
  Serious: No
  Sender: FDA-Public Use
  Company Number: US-PFIZER INC-2007038522

PATIENT
  Sex: Male
  Weight: 77.272 kg

DRUGS (6)
  1. CHANTIX [Suspect]
     Indication: SMOKING CESSATION THERAPY
     Dates: start: 20070401
  2. TERAZOSIN HCL [Concomitant]
  3. OMEPRAZOLE [Concomitant]
  4. TAMSULOSIN HYDROCHLORIDE [Concomitant]
  5. VYTORIN [Concomitant]
  6. SERTRALINE HCL [Concomitant]

REACTIONS (3)
  - ANXIETY [None]
  - ASTHENIA [None]
  - DIZZINESS [None]
